FAERS Safety Report 9404843 (Version 1)
Quarter: 2013Q3

REPORT INFORMATION
  Report Type: Spontaneous
  Country: US (occurrence: None)
  Receive Date: 20130716
  Receipt Date: 20130716
  Transmission Date: 20140515
  Serious: Yes (Other)
  Sender: FDA-Public Use
  Company Number: None

PATIENT
  Age: 89 Year
  Sex: Male
  Weight: 56.7 kg

DRUGS (14)
  1. TOVIAZ(FESOTERODINE FUMARATE) 4 MG EXTENDERED RELEASED TABLET PFIZER U.S. PHARMACEUTICALS MADE IN IRELAND [Suspect]
     Indication: NOCTURIA
     Route: 048
     Dates: start: 20130624, end: 20130625
  2. CARVEDILOL [Concomitant]
  3. OXYBUTYNIN [Concomitant]
  4. TAMSULOSIN [Concomitant]
  5. WARFARIN [Concomitant]
  6. TEMAZEPAM [Concomitant]
  7. PACEMAKER [Concomitant]
  8. HERNIA BELT [Concomitant]
  9. LYCOPENE [Concomitant]
  10. SELENIUM [Concomitant]
  11. IRON [Concomitant]
  12. ZINC [Concomitant]
  13. MELATIONIN, C,D,E [Concomitant]
  14. MULTIVIT/MINERAL [Concomitant]

REACTIONS (2)
  - Pyrexia [None]
  - Drug ineffective [None]
